FAERS Safety Report 24296563 (Version 2)
Quarter: 2024Q3

REPORT INFORMATION
  Report Type: Report from Study
  Country: KR (occurrence: KR)
  Receive Date: 20240909
  Receipt Date: 20240911
  Transmission Date: 20241017
  Serious: Yes (Hospitalization, Other)
  Sender: TAKEDA
  Company Number: KR-TAKEDA-2024TUS089107

PATIENT
  Age: 49 Year
  Sex: Female
  Weight: 43.3 kg

DRUGS (43)
  1. VEDOLIZUMAB [Suspect]
     Active Substance: VEDOLIZUMAB
     Indication: Colitis ulcerative
     Dosage: 300 MILLIGRAM
     Route: 042
     Dates: start: 20240502
  2. CAFSOL [Concomitant]
     Indication: Nutritional supplementation
     Dosage: 500 MILLIGRAM, QD
     Route: 042
     Dates: start: 20240516, end: 20240516
  3. TIROPRAMIDE [Concomitant]
     Active Substance: TIROPRAMIDE
     Indication: Defaecation urgency
     Dosage: 100 MILLIGRAM, TID
     Route: 048
     Dates: start: 20240530, end: 20240612
  4. Codenal [Concomitant]
     Indication: Adverse event
     Dosage: UNK UNK, QD
     Route: 048
     Dates: start: 20240530, end: 20240618
  5. HERBALS [Concomitant]
     Active Substance: HERBALS
     Indication: Adverse event
     Dosage: 30 MILLIGRAM, BID
     Route: 048
     Dates: start: 20240730
  6. Fexuclue [Concomitant]
     Indication: Adverse event
     Dosage: 40 MILLIGRAM, QD
     Route: 048
     Dates: start: 20240730
  7. ALPIT [Concomitant]
     Indication: Colonoscopy
     Dosage: 5 MILLIGRAM, QD
     Route: 042
     Dates: start: 20240902, end: 20240902
  8. Jw ns [Concomitant]
     Indication: Adverse event
     Dosage: UNK UNK, QD
     Route: 042
     Dates: start: 20240902, end: 20240903
  9. PROPOFOL [Concomitant]
     Active Substance: PROPOFOL
     Indication: Sedation
     Dosage: 40 MILLIGRAM, QD
     Route: 042
     Dates: start: 20240902, end: 20240902
  10. OMAPONE PERI [Concomitant]
     Indication: Adverse event
     Dosage: 500 MILLILITER, QD
     Route: 042
     Dates: start: 20240902, end: 20240902
  11. PREDNISOLONE [Concomitant]
     Active Substance: PREDNISOLONE
     Dosage: UNK UNK, QD
     Route: 048
     Dates: start: 20180125, end: 20180215
  12. PREDNISOLONE [Concomitant]
     Active Substance: PREDNISOLONE
     Dosage: UNK UNK, QD
     Route: 048
     Dates: start: 20180216, end: 20180222
  13. PREDNISOLONE [Concomitant]
     Active Substance: PREDNISOLONE
     Dosage: UNK UNK, QD
     Route: 048
     Dates: start: 20180223, end: 20180301
  14. PREDNISOLONE [Concomitant]
     Active Substance: PREDNISOLONE
     Dosage: UNK UNK, QD
     Route: 048
     Dates: start: 20180302, end: 20180308
  15. PREDNISOLONE [Concomitant]
     Active Substance: PREDNISOLONE
     Dosage: UNK UNK, QD
     Route: 048
     Dates: start: 20180309, end: 20180315
  16. PREDNISOLONE [Concomitant]
     Active Substance: PREDNISOLONE
     Dosage: UNK UNK, QD
     Route: 048
     Dates: start: 20180316, end: 20180329
  17. PREDNISOLONE [Concomitant]
     Active Substance: PREDNISOLONE
     Dosage: UNK UNK, QD
     Route: 048
     Dates: start: 20180330, end: 20180405
  18. PREDNISOLONE [Concomitant]
     Active Substance: PREDNISOLONE
     Dosage: UNK UNK, QD
     Route: 048
     Dates: start: 20180406, end: 20180412
  19. PREDNISOLONE [Concomitant]
     Active Substance: PREDNISOLONE
     Dosage: UNK UNK, QD
     Route: 048
     Dates: start: 20180413, end: 20180419
  20. PREDNISOLONE [Concomitant]
     Active Substance: PREDNISOLONE
     Dosage: UNK UNK, QD
     Route: 048
     Dates: start: 20230602, end: 20230617
  21. PREDNISOLONE [Concomitant]
     Active Substance: PREDNISOLONE
     Dosage: UNK UNK, QD
     Route: 048
     Dates: start: 20230618, end: 20230624
  22. PREDNISOLONE [Concomitant]
     Active Substance: PREDNISOLONE
     Dosage: UNK UNK, QD
     Route: 048
     Dates: start: 20230625, end: 20230701
  23. PREDNISOLONE [Concomitant]
     Active Substance: PREDNISOLONE
     Dosage: UNK UNK, QD
     Route: 048
     Dates: start: 20230702, end: 20230708
  24. PREDNISOLONE [Concomitant]
     Active Substance: PREDNISOLONE
     Dosage: UNK UNK, QD
     Route: 048
     Dates: start: 20230709, end: 20230715
  25. PREDNISOLONE [Concomitant]
     Active Substance: PREDNISOLONE
     Dosage: UNK UNK, QD
     Route: 048
     Dates: start: 20230716, end: 20230722
  26. PREDNISOLONE [Concomitant]
     Active Substance: PREDNISOLONE
     Dosage: UNK UNK, QD
     Route: 048
     Dates: start: 20230723, end: 20230729
  27. PREDNISOLONE [Concomitant]
     Active Substance: PREDNISOLONE
     Dosage: UNK UNK, QD
     Route: 048
     Dates: start: 20240513, end: 20240619
  28. AZATHIOPRINE [Concomitant]
     Active Substance: AZATHIOPRINE
     Dosage: UNK UNK, BID
     Route: 048
     Dates: start: 20180202, end: 20180416
  29. AZATHIOPRINE [Concomitant]
     Active Substance: AZATHIOPRINE
     Dosage: UNK UNK, BID
     Route: 048
     Dates: start: 20180508, end: 20180518
  30. AZATHIOPRINE [Concomitant]
     Active Substance: AZATHIOPRINE
     Dosage: UNK UNK, BID
     Route: 048
     Dates: start: 20230602, end: 20230602
  31. AZATHIOPRINE [Concomitant]
     Active Substance: AZATHIOPRINE
     Dosage: UNK UNK, BID
     Route: 048
     Dates: start: 20230603, end: 20230603
  32. AZATHIOPRINE [Concomitant]
     Active Substance: AZATHIOPRINE
     Dosage: UNK UNK, BID
     Route: 048
     Dates: start: 20230604, end: 20230604
  33. AZATHIOPRINE [Concomitant]
     Active Substance: AZATHIOPRINE
     Dosage: UNK UNK, BID
     Route: 048
     Dates: start: 20230707, end: 20231005
  34. AZATHIOPRINE [Concomitant]
     Active Substance: AZATHIOPRINE
     Dosage: UNK UNK, BID
     Route: 048
     Dates: start: 20231006, end: 20231130
  35. PENTASA [Concomitant]
     Active Substance: MESALAMINE
     Dosage: 1000 MILLIGRAM, QD
     Route: 054
     Dates: start: 20210518, end: 20211025
  36. PENTASA [Concomitant]
     Active Substance: MESALAMINE
     Dosage: 1000 MILLIGRAM, QD
     Route: 054
     Dates: start: 20240312, end: 20240506
  37. MESALAMINE [Concomitant]
     Active Substance: MESALAMINE
     Dosage: UNK UNK, QD
     Route: 048
     Dates: start: 20220811, end: 20231005
  38. MESALAMINE [Concomitant]
     Active Substance: MESALAMINE
     Dosage: UNK UNK, QD
     Route: 048
     Dates: start: 20221006, end: 20240311
  39. MESALAMINE [Concomitant]
     Active Substance: MESALAMINE
     Dosage: UNK UNK, QD
     Route: 048
     Dates: start: 20240312
  40. HYDROCORTISONE SODIUM SUCCINATE [Concomitant]
     Active Substance: HYDROCORTISONE SODIUM SUCCINATE
     Dosage: 100 MILLIGRAM, TID
     Route: 042
     Dates: start: 20230530, end: 20230601
  41. Jr hydrocortisone [Concomitant]
     Dosage: UNK UNK, QD
     Route: 048
     Dates: start: 20230602, end: 20230602
  42. ASACOL [Concomitant]
     Active Substance: MESALAMINE
     Dosage: 500 MILLIGRAM, QD
     Route: 054
     Dates: start: 20240513, end: 20240516
  43. Lopain [Concomitant]
     Dosage: UNK UNK, BID
     Route: 048
     Dates: start: 20240516, end: 20240529

REACTIONS (1)
  - Enterocolitis infectious [Recovered/Resolved]

NARRATIVE: CASE EVENT DATE: 20240902
